FAERS Safety Report 15963099 (Version 3)
Quarter: 2019Q1

REPORT INFORMATION
  Report Type: Report from Study
  Country: US (occurrence: US)
  Receive Date: 20190214
  Receipt Date: 20190304
  Transmission Date: 20190417
  Serious: Yes (Death)
  Sender: FDA-Public Use
  Company Number: US-HLSUS-2019-US-000108

PATIENT
  Sex: Female

DRUGS (1)
  1. CLOZAPINE. [Suspect]
     Active Substance: CLOZAPINE

REACTIONS (6)
  - Nausea [Unknown]
  - Vomiting [Unknown]
  - Influenza [Unknown]
  - Pneumonia [Unknown]
  - Death [Fatal]
  - Urinary tract infection [Unknown]
